FAERS Safety Report 4975387-1 (Version None)
Quarter: 2006Q2

REPORT INFORMATION
  Report Type: 
  Country: None (occurrence: None)
  Receive Date: 20060418
  Receipt Date: 20050113
  Transmission Date: 20061013
  Serious: Yes (Hospitalization)
  Sender: FDA-Public Use
  Company Number: US-MERCK-0501USA02366

PATIENT
  Age: 52 Year
  Sex: Female
  Weight: 114 kg

DRUGS (16)
  1. VIOXX [Suspect]
     Indication: ARTHRITIS
     Route: 048
     Dates: start: 20000904, end: 20040903
  2. FLONASE [Concomitant]
     Route: 065
  3. ALBUTEROL [Concomitant]
     Route: 065
  4. ADVAIR DISKUS 100/50 [Concomitant]
     Route: 065
  5. LIPITOR [Concomitant]
     Route: 065
  6. LEXAPRO [Concomitant]
     Route: 065
  7. EFFEXOR XR [Concomitant]
     Route: 065
  8. PREVACID [Concomitant]
     Route: 065
  9. BEXTRA [Concomitant]
     Route: 065
  10. REGLAN [Concomitant]
     Route: 065
  11. HYDROCHLOROTHIAZIDE AND TRIAMTERENE [Concomitant]
     Route: 065
  12. ADALAT [Concomitant]
     Route: 065
  13. BUSPAR [Concomitant]
     Route: 065
  14. TRAZODONE HYDROCHLORIDE [Concomitant]
     Route: 065
  15. KLOR-CON [Concomitant]
     Route: 065
  16. DARVOCET [Concomitant]
     Route: 065

REACTIONS (11)
  - ASTHMA [None]
  - BLADDER DISORDER [None]
  - BLOOD CHOLESTEROL INCREASED [None]
  - BLOOD TRIGLYCERIDES INCREASED [None]
  - GASTROENTERITIS VIRAL [None]
  - HIGH DENSITY LIPOPROTEIN DECREASED [None]
  - METABOLIC SYNDROME [None]
  - MYOCARDIAL INFARCTION [None]
  - RECTOCELE [None]
  - SINUSITIS [None]
  - STRESS INCONTINENCE [None]
